FAERS Safety Report 17805071 (Version 1)
Quarter: 2020Q2

REPORT INFORMATION
  Report Type: Spontaneous
  Country: JP (occurrence: JP)
  Receive Date: 20200519
  Receipt Date: 20200519
  Transmission Date: 20200714
  Serious: Yes (Other)
  Sender: FDA-Public Use
  Company Number: NVSC2020JP136909

PATIENT
  Age: 85 Year
  Sex: Male

DRUGS (3)
  1. PACLITAXEL. [Concomitant]
     Active Substance: PACLITAXEL
     Indication: PRODUCT USED FOR UNKNOWN INDICATION
     Dosage: UNK, Q2W
     Route: 065
  2. DOCETAXEL. [Concomitant]
     Active Substance: DOCETAXEL
     Indication: PRODUCT USED FOR UNKNOWN INDICATION
     Dosage: UNK, Q2W
     Route: 065
  3. PAZOPANIB [Suspect]
     Active Substance: PAZOPANIB
     Indication: ANGIOSARCOMA
     Dosage: 800 MG
     Route: 065

REACTIONS (6)
  - Neutropenia [Unknown]
  - Sepsis [Unknown]
  - Thrombocytopenia [Unknown]
  - Product use in unapproved indication [Unknown]
  - Cholecystitis [Unknown]
  - Therapy partial responder [Unknown]
